FAERS Safety Report 5939668-7 (Version None)
Quarter: 2008Q4

REPORT INFORMATION
  Report Type: 
  Country: None (occurrence: None)
  Receive Date: 20081030
  Receipt Date: 20081030
  Transmission Date: 20090506
  Serious: Yes (Other)
  Sender: FDA-Public Use
  Company Number: None

PATIENT
  Age: 84 Year
  Sex: Female
  Weight: 45.3597 kg

DRUGS (2)
  1. CEFUROXIME AXETIL [Suspect]
     Dosage: 250MG BID PO
     Route: 048
     Dates: start: 20081022, end: 20081024
  2. CLINDAMYCIN HYDROCHLORIDE [Suspect]
     Dosage: 300MG QID PO
     Route: 048
     Dates: start: 20081017, end: 20081025

REACTIONS (2)
  - PRURITUS [None]
  - RASH [None]
